FAERS Safety Report 6490575-3 (Version None)
Quarter: 2009Q4

REPORT INFORMATION
  Report Type: 
  Country: None (occurrence: None)
  Receive Date: 20091124
  Receipt Date: 20090904
  Transmission Date: 20100525
  Serious: Yes (Other)
  Sender: FDA-Public Use
  Company Number: 289876

PATIENT
  Age: 69 Year
  Sex: Female
  Weight: 64 kg

DRUGS (4)
  1. HERCEPTIN [Suspect]
     Indication: BREAST CANCER
     Dosage: 254 MG, UNK, INTRAVENOUS; 127 MG, DAYS 1,8, 15, INTRAVENOUS
     Route: 042
     Dates: start: 20090901, end: 20090903
  2. HERCEPTIN [Suspect]
     Indication: BREAST CANCER
     Dosage: 254 MG, UNK, INTRAVENOUS; 127 MG, DAYS 1,8, 15, INTRAVENOUS
     Route: 042
     Dates: start: 20090825
  3. DEXAMETHASONE TAB [Concomitant]
  4. DOCETAXEL (DOCETAXEL) 08/25/2009 TO UNK [Concomitant]

REACTIONS (2)
  - RASH ERYTHEMATOUS [None]
  - SWELLING FACE [None]
